FAERS Safety Report 17768810 (Version 2)
Quarter: 2020Q2

REPORT INFORMATION
  Report Type: Spontaneous
  Country: FR (occurrence: FR)
  Receive Date: 20200512
  Receipt Date: 20200530
  Transmission Date: 20200714
  Serious: Yes (Hospitalization, Other)
  Sender: FDA-Public Use
  Company Number: FR-AUROBINDO-AUR-APL-2020-022336

PATIENT
  Age: 18 Year
  Sex: Male
  Weight: 60 kg

DRUGS (5)
  1. SERTRALINE ARROW [Suspect]
     Active Substance: SERTRALINE HYDROCHLORIDE
     Indication: POST-TRAUMATIC STRESS DISORDER
     Dosage: 50 MILLIGRAM
     Route: 048
     Dates: start: 20200330
  2. PARACETAMOL [Suspect]
     Active Substance: ACETAMINOPHEN
     Indication: POST-TRAUMATIC STRESS DISORDER
     Dosage: 4 GRAM
     Route: 048
     Dates: start: 20200326
  3. THERALENE [Suspect]
     Active Substance: TRIMEPRAZINE
     Indication: POST-TRAUMATIC STRESS DISORDER
     Dosage: 15 MILLIGRAM
     Route: 048
     Dates: start: 20200326
  4. TERCIAN [Suspect]
     Active Substance: CYAMEMAZINE
     Indication: POST-TRAUMATIC STRESS DISORDER
     Dosage: 150 GTT DROPS (1/12 MILLILITRE)
     Route: 048
     Dates: start: 20200326
  5. SERTRALINE ARROW [Suspect]
     Active Substance: SERTRALINE HYDROCHLORIDE
     Dosage: 25 MILLIGRAM
     Route: 048
     Dates: start: 20200402

REACTIONS (2)
  - Hepatitis [Recovering/Resolving]
  - Intentional product use issue [Unknown]

NARRATIVE: CASE EVENT DATE: 20200407
